FAERS Safety Report 8223600-X (Version None)
Quarter: 2012Q1

REPORT INFORMATION
  Report Type: 
  Country: None (occurrence: None)
  Receive Date: 20120321
  Receipt Date: 20120319
  Transmission Date: 20120608
  Serious: No
  Sender: FDA-Public Use
  Company Number: US-PFIZER INC-2012071537

PATIENT
  Sex: Male
  Weight: 68.027 kg

DRUGS (5)
  1. LISINOPRIL [Concomitant]
     Indication: HYPERTENSION
     Dosage: UNK
  2. ATENOLOL [Concomitant]
     Indication: HYPERTENSION
     Dosage: UNK
  3. TOVIAZ [Suspect]
     Indication: HYPERTONIC BLADDER
     Dosage: 4 MG, 1X/DAY
     Route: 048
     Dates: start: 20120213
  4. CALCIUM CARBONATE [Concomitant]
     Dosage: UNK, 1X/DAY
  5. VITAMIN B COMPLEX CAP [Concomitant]
     Dosage: UNK, 1X/DAY

REACTIONS (3)
  - SLEEP DISORDER [None]
  - SPONTANEOUS PENILE ERECTION [None]
  - DRUG INEFFECTIVE [None]
